FAERS Safety Report 7098405-6 (Version None)
Quarter: 2010Q4

REPORT INFORMATION
  Report Type: 
  Country: None (occurrence: None)
  Receive Date: 20101104
  Receipt Date: 20101025
  Transmission Date: 20110411
  Serious: Yes (Hospitalization)
  Sender: FDA-Public Use
  Company Number: 7023902

PATIENT
  Age: 87 Year
  Sex: Female

DRUGS (8)
  1. LEVOTHYROXINE SODIUM [Suspect]
     Indication: PRODUCT USED FOR UNKNOWN INDICATION
     Dosage: 75 MCG (75 MCG, 1 IN 1 D) ORAL
     Route: 048
  2. CORDARONE [Suspect]
     Indication: PRODUCT USED FOR UNKNOWN INDICATION
     Dosage: (100 MG) ORAL
     Route: 048
     Dates: start: 20050101, end: 20100812
  3. NITROGLYCERIN [Suspect]
     Indication: PRODUCT USED FOR UNKNOWN INDICATION
     Dosage: 10 MG (10 MG, 1 IN 1 D) TRANSDERMAL
     Route: 062
  4. PREVISCAN (FLUINDIONE) (PENTOXIFYLLINE) [Suspect]
     Indication: PRODUCT USED FOR UNKNOWN INDICATION
     Dosage: ORAL
     Route: 048
     Dates: end: 20100817
  5. ALDALIX (OSYROL-LASIX) (FUROSEMIDE, SPIRONOLACTONE) [Suspect]
     Indication: PRODUCT USED FOR UNKNOWN INDICATION
     Dosage: 1 DF (1 DF, 1 IN 1 D) ORAL
     Route: 048
     Dates: end: 20100812
  6. RABEPRAZOLE SODIUM [Suspect]
     Indication: PRODUCT USED FOR UNKNOWN INDICATION
     Dosage: 10 MG (10 MG, 1 IN 1 D) ORAL
     Route: 048
     Dates: end: 20100812
  7. CALCIDOSE VITAMINE D (LEKOVIT CA) (POWDER FOR ORAL SOLUTION) (CHOLECAL [Suspect]
     Indication: PRODUCT USED FOR UNKNOWN INDICATION
     Dosage: 9 DF (3 DF, 3 IN 1 D) ORAL
     Route: 048
     Dates: end: 20100801
  8. FOSAMAX [Suspect]
     Indication: PRODUCT USED FOR UNKNOWN INDICATION
     Dosage: 0.1429 DF (1 DF, 1 IN 1 WK) ORAL
     Route: 048
     Dates: end: 20100801

REACTIONS (11)
  - CARDIAC FAILURE [None]
  - CONDITION AGGRAVATED [None]
  - FALL [None]
  - INTERNATIONAL NORMALISED RATIO INCREASED [None]
  - INTERSTITIAL LUNG DISEASE [None]
  - OVERDOSE [None]
  - PLEURAL EFFUSION [None]
  - PULMONARY FIBROSIS [None]
  - RESPIRATORY FAILURE [None]
  - RIB FRACTURE [None]
  - SPINAL FRACTURE [None]
